FAERS Safety Report 6119106-4 (Version None)
Quarter: 2009Q1

REPORT INFORMATION
  Report Type: 
  Country: None (occurrence: None)
  Receive Date: 20090311
  Receipt Date: 20090224
  Transmission Date: 20090719
  Serious: Yes (Hospitalization)
  Sender: FDA-Public Use
  Company Number: 2009S1003283

PATIENT
  Age: 43 Year
  Sex: Female
  Weight: 163.5 kg

DRUGS (21)
  1. LISINOPRIL [Suspect]
     Indication: DRUG USE FOR UNKNOWN INDICATION
     Dosage: 20 MG; ORAL
     Route: 048
     Dates: end: 20081013
  2. ACOMPLIA (RIMONABANT) (20 MG) [Suspect]
     Indication: OBESITY
     Dosage: 20 MG; ORAL
     Route: 048
     Dates: start: 20070629, end: 20081013
  3. IRBESARTAN [Suspect]
     Indication: DRUG USE FOR UNKNOWN INDICATION
     Dosage: 150 MG, ORAL
     Route: 048
     Dates: end: 20081013
  4. SPIRONOLACTONE [Suspect]
     Indication: DRUG USE FOR UNKNOWN INDICATION
     Dosage: 50 MG; ORAL
     Route: 048
     Dates: end: 20081013
  5. ASPIRIN [Concomitant]
  6. ATENOLOL [Concomitant]
  7. ATORVASTATIN [Concomitant]
  8. CODEINE SUL TAB [Concomitant]
  9. FUROSEMIDE [Concomitant]
  10. CYCERYL TRINITRATE [Concomitant]
  11. ISOSORBIDE MONONITRATE [Concomitant]
  12. ISPAGHULA HUSK /00029102/ [Concomitant]
  13. LIDOCAINE [Concomitant]
  14. NITRAZEPAM [Concomitant]
  15. LOVAZA [Concomitant]
  16. OMEPRAZOLE [Concomitant]
  17. PARACETAMOL [Concomitant]
  18. QUININE SULFATE [Concomitant]
  19. TRIMETHOPRIM [Concomitant]
  20. VESICARE [Concomitant]
  21. BISOPROLOL [Concomitant]

REACTIONS (10)
  - BACK PAIN [None]
  - DEHYDRATION [None]
  - DYSPEPSIA [None]
  - FEAR OF EATING [None]
  - GASTROOESOPHAGEAL REFLUX DISEASE [None]
  - HYPERTENSION [None]
  - PYREXIA [None]
  - RECTAL HAEMORRHAGE [None]
  - RENAL FAILURE ACUTE [None]
  - WEIGHT INCREASED [None]
